FAERS Safety Report 7659380-6 (Version None)
Quarter: 2011Q3

REPORT INFORMATION
  Report Type: 
  Country: None (occurrence: None)
  Receive Date: 20110805
  Receipt Date: 20110729
  Transmission Date: 20111222
  Serious: Yes (Hospitalization, Other)
  Sender: FDA-Public Use
  Company Number: KR-BAYER-2011-036539

PATIENT
  Age: 44 Year
  Sex: Male
  Weight: 71.2 kg

DRUGS (41)
  1. SORAFENIB (RAF KINASE INHIBITOR) [Suspect]
     Dosage: 400 MG, BID
     Route: 048
     Dates: start: 20110408, end: 20110428
  2. WITH [Concomitant]
     Indication: GASTRIC ULCER
     Dosage: 50 MG, TID
     Route: 048
     Dates: start: 20101123
  3. ALLEGRA [Concomitant]
     Indication: DIARRHOEA
     Dosage: 180 MG, QD
     Route: 048
     Dates: start: 20110325
  4. METOCLOPRAMIDE [Concomitant]
     Indication: NAUSEA
     Dosage: 10 MG, QD
     Route: 042
     Dates: start: 20110422, end: 20110422
  5. MUCOGEL [Concomitant]
     Indication: GASTRIC ULCER
     Dosage: 12 G, TID
     Route: 048
     Dates: start: 20110701
  6. MEK INHIBITOR (DIHYDROXYPROP-DIFLU-METHOXYPHEN-CYCLOPROPA-SULFAMI) [Suspect]
     Dosage: 50 MG, BID
     Route: 048
     Dates: start: 20110512, end: 20110714
  7. SORAFENIB (RAF KINASE INHIBITOR) [Suspect]
     Dosage: 600MG (200/400MG QD)
     Route: 048
     Dates: start: 20110319, end: 20110407
  8. SORAFENIB (RAF KINASE INHIBITOR) [Suspect]
     Dosage: 400 MG, BID
     Route: 048
     Dates: start: 20110512, end: 20110714
  9. ULTRAVIST 150 [Concomitant]
     Indication: COMPUTERISED TOMOGRAM
     Dosage: 140 ML, ONCE
     Route: 042
     Dates: start: 20100314, end: 20100314
  10. SMECTA [SMECTITE] [Concomitant]
     Indication: DIARRHOEA
     Dosage: 20 ML, TID
     Route: 048
     Dates: start: 20110322, end: 20110323
  11. NORVASC [Concomitant]
     Indication: HYPERTENSION
     Dosage: 5 MG, QD
     Route: 048
     Dates: start: 20110401
  12. HYDROCORTISONE BUTYRATE PROPIONATE [Concomitant]
     Indication: PALMAR-PLANTAR ERYTHRODYSAESTHESIA SYNDROME
     Dosage: UNK UNK, PRN
     Route: 061
     Dates: start: 20110505
  13. SORAFENIB (RAF KINASE INHIBITOR) [Suspect]
     Indication: HEPATIC NEOPLASM MALIGNANT
     Dosage: 400 MG, QD
     Route: 048
     Dates: start: 20110318, end: 20110318
  14. HEPADIAL [DIMECROTIC ACID] [Concomitant]
     Indication: GASTRIC ULCER
     Dosage: 50 MG, TID
     Route: 048
     Dates: start: 20101123, end: 20110324
  15. MEGESTROL ACETATE [Concomitant]
     Indication: PROPHYLAXIS
     Dosage: 20 ML, QD
     Route: 048
     Dates: start: 20110320, end: 20110414
  16. MEGESTROL ACETATE [Concomitant]
     Dosage: 20 ML, QD
     Route: 048
     Dates: start: 20110508
  17. PANTOPRAZOLE SODIUM [Concomitant]
     Indication: GASTRIC ULCER
     Dosage: 20 MG, QD
     Route: 048
     Dates: start: 20110613
  18. MEK INHIBITOR (DIHYDROXYPROP-DIFLU-METHOXYPHEN-CYCLOPROPA-SULFAMI) [Suspect]
     Dosage: 50 MG, BID
     Route: 048
     Dates: start: 20110319, end: 20110328
  19. BARACLUDE [Concomitant]
     Indication: HEPATITIS B
     Dosage: 0.5 MG, QD
     Route: 048
     Dates: start: 20101110
  20. GASMOTIN [Concomitant]
     Indication: GASTRIC ULCER
     Dosage: 5 MG, QD
     Route: 048
     Dates: start: 20110317, end: 20110317
  21. ULTRAVIST 150 [Concomitant]
     Dosage: 140 ML, ONCE
     Route: 042
     Dates: start: 20110603, end: 20110603
  22. GASMOTIN [Concomitant]
     Dosage: 5 MG, QD
     Route: 048
     Dates: start: 20110318, end: 20110318
  23. KLENZO SOLUTION [Concomitant]
     Indication: DECREASED APPETITE
     Dosage: UNK UNK, PRN
     Route: 048
     Dates: start: 20110701
  24. MEK INHIBITOR (DIHYDROXYPROP-DIFLU-METHOXYPHEN-CYCLOPROPA-SULFAMI) [Suspect]
     Dosage: 50 MG, QD
     Route: 048
     Dates: start: 20110511, end: 20110511
  25. MEK INHIBITOR (DIHYDROXYPROP-DIFLU-METHOXYPHEN-CYCLOPROPA-SULFAMI) [Suspect]
     Dosage: 50 MG, QD
     Route: 048
     Dates: start: 20110715, end: 20110715
  26. SORAFENIB (RAF KINASE INHIBITOR) [Suspect]
     Dosage: 400 MG, QD
     Route: 048
     Dates: start: 20110429, end: 20110429
  27. LOPERAMIDE HCL [Concomitant]
     Indication: DIARRHOEA
     Dosage: 2 MG, TID
     Route: 048
     Dates: start: 20110322, end: 20110323
  28. LOPERAMIDE HCL [Concomitant]
     Dosage: 2 MG, PRN
     Route: 048
     Dates: start: 20110422
  29. TELMISARTAN [Concomitant]
     Indication: HYPERTENSION
     Dosage: 40 MG, QD
     Route: 048
     Dates: start: 20110408
  30. DESOWEN [Concomitant]
     Indication: PALMAR-PLANTAR ERYTHRODYSAESTHESIA SYNDROME
     Dosage: UNK UNK, PRN
     Route: 061
     Dates: start: 20110503
  31. XYZAL [Concomitant]
     Indication: PALMAR-PLANTAR ERYTHRODYSAESTHESIA SYNDROME
     Dosage: 5 MG, QD
     Route: 048
     Dates: start: 20110504
  32. MEK INHIBITOR (DIHYDROXYPROP-DIFLU-METHOXYPHEN-CYCLOPROPA-SULFAMI) [Suspect]
     Dosage: 50 MG, QD
     Route: 048
     Dates: start: 20110429, end: 20110429
  33. SORAFENIB (RAF KINASE INHIBITOR) [Suspect]
     Dosage: 400 MG, QD
     Route: 048
     Dates: start: 20110511, end: 20110511
  34. ULTRAVIST 150 [Concomitant]
     Dosage: 140 ML, ONCE
     Route: 042
     Dates: start: 20110715, end: 20110715
  35. HEPATAMINE [Concomitant]
     Indication: MEDICAL DIET
     Dosage: 500 ML, QD
     Route: 042
     Dates: start: 20110311, end: 20110311
  36. MEK INHIBITOR (DIHYDROXYPROP-DIFLU-METHOXYPHEN-CYCLOPROPA-SULFAMI) [Suspect]
     Indication: HEPATIC NEOPLASM MALIGNANT
     Dosage: 50 MG, QD
     Route: 048
     Dates: start: 20110318, end: 20110318
  37. SORAFENIB (RAF KINASE INHIBITOR) [Suspect]
     Dosage: 400 MG, QD
     Route: 048
     Dates: start: 20110715, end: 20110715
  38. ULTRAVIST 150 [Concomitant]
     Dosage: 140 ML, ONCE
     Route: 042
     Dates: start: 20110422, end: 20110422
  39. LIVACT [Concomitant]
     Indication: PROPHYLAXIS
     Dosage: 4.15 G, TID
     Route: 048
     Dates: start: 20101112
  40. ANTIBIOTICS [Concomitant]
     Indication: ANTIBIOTIC PROPHYLAXIS
     Dosage: 300 MG, TID
     Route: 048
     Dates: start: 20101123
  41. LACTICARE HC [Concomitant]
     Indication: PALMAR-PLANTAR ERYTHRODYSAESTHESIA SYNDROME
     Dosage: PRN
     Route: 061
     Dates: start: 20110325, end: 20110502

REACTIONS (2)
  - MYOPATHY [None]
  - LEFT VENTRICULAR DYSFUNCTION [None]
